FAERS Safety Report 10507788 (Version 1)
Quarter: 2014Q4

REPORT INFORMATION
  Report Type: Spontaneous
  Country: CA (occurrence: None)
  Receive Date: 20141008
  Receipt Date: 20141008
  Transmission Date: 20150528
  Serious: Yes (Disabling, Other)
  Sender: FDA-Public Use
  Company Number: None

PATIENT
  Age: 67 Year
  Sex: Female
  Weight: 65.77 kg

DRUGS (2)
  1. PROLIA [Suspect]
     Active Substance: DENOSUMAB
     Dosage: 1 INJECTION 1X THAT YEAR GIVEN INTO/UNDER THE SKIN
     Dates: start: 20130703
  2. PROLIA [Suspect]
     Active Substance: DENOSUMAB
     Indication: BONE DISORDER
     Dosage: 1 INJECTION 1X THAT YEAR GIVEN INTO/UNDER THE SKIN
     Dates: start: 20130703

REACTIONS (20)
  - Fatigue [None]
  - Neck pain [None]
  - Arthralgia [None]
  - Musculoskeletal stiffness [None]
  - Frustration [None]
  - Urticaria [None]
  - Photosensitivity reaction [None]
  - Groin pain [None]
  - Insomnia [None]
  - Pain in extremity [None]
  - Memory impairment [None]
  - Anxiety [None]
  - Pruritus [None]
  - Sciatica [None]
  - Muscle fatigue [None]
  - Discomfort [None]
  - Bone pain [None]
  - Cough [None]
  - Rash [None]
  - Back pain [None]

NARRATIVE: CASE EVENT DATE: 20130703
